FAERS Safety Report 6020814-4 (Version None)
Quarter: 2008Q4

REPORT INFORMATION
  Report Type: 
  Country: None (occurrence: None)
  Receive Date: 20081229
  Receipt Date: 20081218
  Transmission Date: 20090506
  Serious: Yes (Death)
  Sender: FDA-Public Use
  Company Number: US-JNJFOC-20081206206

PATIENT
  Age: 22 Year
  Sex: Female

DRUGS (4)
  1. CONCERTA [Suspect]
     Indication: SUICIDE ATTEMPT
     Route: 048
  2. EPHEDRA [Suspect]
     Indication: SUICIDE ATTEMPT
     Route: 065
  3. ETHANOL [Suspect]
     Indication: SUICIDE ATTEMPT
     Route: 065
  4. VALERIAN [Suspect]
     Indication: SUICIDE ATTEMPT
     Route: 065

REACTIONS (2)
  - COMPLETED SUICIDE [None]
  - DRUG TOXICITY [None]
